FAERS Safety Report 9137843 (Version 6)
Quarter: 2013Q4

REPORT INFORMATION
  Report Type: Report from Study
  Country: US (occurrence: US)
  Receive Date: 20130304
  Receipt Date: 20131216
  Transmission Date: 20140711
  Serious: Yes (Other)
  Sender: FDA-Public Use
  Company Number: US-TEVA-389409USA

PATIENT
  Age: 25 Year
  Sex: Female

DRUGS (2)
  1. CLARAVIS [Suspect]
     Dosage: 60 MILLIGRAM DAILY;
     Dates: start: 20100517, end: 201009
  2. TERCONAZOLE [Concomitant]
     Indication: FUNGAL INFECTION
     Dosage: 1 TUBE HS X7
     Route: 067
     Dates: start: 20130724

REACTIONS (1)
  - Unintended pregnancy [Recovered/Resolved]
